FAERS Safety Report 18884675 (Version 1)
Quarter: 2021Q1

REPORT INFORMATION
  Report Type: Spontaneous
  Country: US (occurrence: US)
  Receive Date: 20210211
  Receipt Date: 20210211
  Transmission Date: 20210420
  Serious: Yes (Hospitalization)
  Sender: FDA-Public Use
  Company Number: None

PATIENT
  Sex: Male

DRUGS (6)
  1. TAMSULOSIN [Concomitant]
     Active Substance: TAMSULOSIN
  2. ROSUVASTATIN. [Concomitant]
     Active Substance: ROSUVASTATIN
  3. RAMIPRIL. [Concomitant]
     Active Substance: RAMIPRIL
  4. ESBRIET [Suspect]
     Active Substance: PIRFENIDONE
     Indication: IDIOPATHIC PULMONARY FIBROSIS
     Route: 048
     Dates: start: 20190112
  5. EZETIMBE [Concomitant]
     Active Substance: EZETIMIBE
  6. METOPROL TAR [Concomitant]

REACTIONS (1)
  - Colon operation [None]
